FAERS Safety Report 24295233 (Version 1)
Quarter: 2024Q3

REPORT INFORMATION
  Report Type: Spontaneous
  Country: CN (occurrence: CN)
  Receive Date: 20240907
  Receipt Date: 20240907
  Transmission Date: 20241017
  Serious: Yes (Death)
  Sender: AMGEN
  Company Number: CN-AMGEN-CHNSP2024177002

PATIENT

DRUGS (7)
  1. BLINATUMOMAB [Suspect]
     Active Substance: BLINATUMOMAB
     Indication: B-cell type acute leukaemia
     Dosage: 9 MICROGRAM, QD, D1-3
     Route: 042
  2. BLINATUMOMAB [Suspect]
     Active Substance: BLINATUMOMAB
     Dosage: 28 MICROGRAM, QD, D4-14
     Route: 042
  3. SEMUSTINE [Concomitant]
     Active Substance: SEMUSTINE
     Dosage: 250 MILLIGRAM/SQ. METER, QD, ON DAY -10
  4. CYTARABINE [Concomitant]
     Active Substance: CYTARABINE
     Dosage: 4 GRAM PER SQUARE METRE, QD, ON DAYS -9 AND -8
  5. BUSULFAN [Concomitant]
     Active Substance: BUSULFAN
     Dosage: 3.2 MILLIGRAM/KILOGRAM, QD, ON DAYS-7 TO -5
     Route: 042
  6. CYCLOPHOSPHAMIDE [Concomitant]
     Active Substance: CYCLOPHOSPHAMIDE
     Dosage: 1.8 GRAM PER SQUARE METRE, QD, DAYS -4 TO -3
  7. DEXAMETHASONE [Concomitant]
     Active Substance: DEXAMETHASONE
     Indication: Prophylaxis
     Dosage: 20 MILLIGRAM

REACTIONS (1)
  - Multiple organ dysfunction syndrome [Fatal]
